FAERS Safety Report 5305214-4 (Version None)
Quarter: 2007Q1

REPORT INFORMATION
  Report Type: 
  Country: None (occurrence: None)
  Receive Date: 20070201
  Receipt Date: 20061113
  Transmission Date: 20070707
  Serious: No
  Sender: FDA-Public Use
  Company Number: 2006PV025174

PATIENT
  Age: 78 Year
  Sex: Male

DRUGS (4)
  1. BYETTA [Suspect]
     Indication: DIABETES MELLITUS NON-INSULIN-DEPENDENT
     Dosage: 5 MCG;BID;SC
     Route: 058
     Dates: start: 20061110
  2. GLIPIZIDE [Concomitant]
  3. METFORMIN HCL [Concomitant]
  4. AVANDIA [Concomitant]

REACTIONS (1)
  - BLOOD GLUCOSE FLUCTUATION [None]
